FAERS Safety Report 24248594 (Version 7)
Quarter: 2025Q1

REPORT INFORMATION
  Report Type: Spontaneous
  Country: CA (occurrence: CA)
  Receive Date: 20240826
  Receipt Date: 20250313
  Transmission Date: 20250409
  Serious: Yes (Hospitalization, Other)
  Sender: PFIZER
  Company Number: CA-PFIZER INC-202400226555

PATIENT
  Age: 31 Year
  Sex: Female
  Weight: 61 kg

DRUGS (3)
  1. RUXIENCE [Suspect]
     Active Substance: RITUXIMAB-PVVR
     Indication: Neuromyelitis optica spectrum disorder
     Route: 042
     Dates: start: 20230526, end: 20230526
  2. RUXIENCE [Suspect]
     Active Substance: RITUXIMAB-PVVR
     Indication: Anti-aquaporin-4 antibody positive
     Route: 042
     Dates: start: 20240115, end: 20240115
  3. RUXIENCE [Suspect]
     Active Substance: RITUXIMAB-PVVR
     Route: 042
     Dates: start: 20240826

REACTIONS (8)
  - Bacterial infection [Not Recovered/Not Resolved]
  - Caesarean section [Unknown]
  - Post procedural infection [Unknown]
  - Escherichia bacteraemia [Recovered/Resolved]
  - Pyelonephritis [Recovered/Resolved]
  - Cellulitis [Recovered/Resolved]
  - Furuncle [Not Recovered/Not Resolved]
  - Dehydration [Not Recovered/Not Resolved]

NARRATIVE: CASE EVENT DATE: 20240101
